FAERS Safety Report 17636431 (Version 1)
Quarter: 2020Q2

REPORT INFORMATION
  Report Type: Spontaneous
  Country: CN (occurrence: CN)
  Receive Date: 20200407
  Receipt Date: 20200407
  Transmission Date: 20200713
  Serious: Yes (Other)
  Sender: FDA-Public Use
  Company Number: CN-BAXTER-2020BAX007368

PATIENT
  Age: 57 Year
  Sex: Male
  Weight: 80 kg

DRUGS (10)
  1. DEXAMETHASONE. [Suspect]
     Active Substance: DEXAMETHASONE
     Indication: LYMPHOCYTIC LEUKAEMIA
     Dosage: HYPER-CVAD CHEMOTHERAPY, DAY 1 TO DAY 4
     Route: 065
     Dates: start: 20200315, end: 20200318
  2. ENDOXAN [Suspect]
     Active Substance: CYCLOPHOSPHAMIDE
     Dosage: DOSE RE-INTRODUCED
     Route: 041
     Dates: start: 202003
  3. VINCRISTINE SULFATE. [Suspect]
     Active Substance: VINCRISTINE SULFATE
     Indication: LYMPHOCYTIC LEUKAEMIA
     Dosage: HYPER-CVAD CHEMOTHERAPY, DAY 4
     Route: 042
     Dates: start: 20200318, end: 20200318
  4. AIDASHENG [Suspect]
     Active Substance: EPIRUBICIN HYDROCHLORIDE
     Dosage: DOSE RE-INTRODUCED
     Route: 041
     Dates: start: 202003
  5. ENDOXAN [Suspect]
     Active Substance: CYCLOPHOSPHAMIDE
     Dosage: HYPER-CVAD CHEMOTHERAPY, DAY 1 TO DAY 3
     Route: 041
     Dates: start: 20200315, end: 20200317
  6. VINCRISTINE SULFATE. [Suspect]
     Active Substance: VINCRISTINE SULFATE
     Dosage: HYPER-CVAD CHEMOTHERAPY, DAY 11, DOSE RE-INTRODUCED
     Route: 042
     Dates: start: 20200325, end: 20200325
  7. ENDOXAN [Suspect]
     Active Substance: CYCLOPHOSPHAMIDE
     Indication: LYMPHOCYTIC LEUKAEMIA
     Dosage: PRIOR AE REGIMEN
     Route: 065
  8. UROMITEXAN [Suspect]
     Active Substance: MESNA
     Indication: PROPHYLAXIS
     Dosage: HYPER-CVAD CHEMOTHERAPY, DAY 1 TO DAY 3
     Route: 065
     Dates: start: 20200315, end: 20200317
  9. AIDASHENG [Suspect]
     Active Substance: EPIRUBICIN HYDROCHLORIDE
     Indication: LYMPHOCYTIC LEUKAEMIA
     Dosage: HYPER-CVAD CHEMOTHERAPY, DAY 4
     Route: 041
     Dates: start: 20200318, end: 20200318
  10. DEXAMETHASONE. [Suspect]
     Active Substance: DEXAMETHASONE
     Dosage: HYPER-CVAD CHEMOTHERAPY, DAY 11 TO DAY 14
     Route: 065
     Dates: start: 20200325, end: 20200328

REACTIONS (2)
  - Bone marrow failure [Recovering/Resolving]
  - Bone marrow failure [Recovered/Resolved]

NARRATIVE: CASE EVENT DATE: 20200322
